FAERS Safety Report 12297874 (Version 1)
Quarter: 2016Q2

REPORT INFORMATION
  Report Type: Spontaneous
  Country: ZA (occurrence: ZA)
  Receive Date: 20160422
  Receipt Date: 20160422
  Transmission Date: 20160815
  Serious: Yes (Other)
  Sender: FDA-Public Use
  Company Number: ZA-PFIZER INC-2016222699

PATIENT
  Sex: Female

DRUGS (2)
  1. ZMAX [Suspect]
     Active Substance: AZITHROMYCIN DIHYDRATE
     Dosage: SINGLE DOSE
     Dates: start: 20160408, end: 20160408
  2. URIZONE [Concomitant]
     Dosage: UNK
     Dates: start: 20160408

REACTIONS (5)
  - Hypoaesthesia [Unknown]
  - Dysphagia [Unknown]
  - Hemiparesis [Not Recovered/Not Resolved]
  - Paraesthesia [Recovered/Resolved]
  - Sensation of foreign body [Unknown]
